FAERS Safety Report 19574752 (Version 3)
Quarter: 2021Q3

REPORT INFORMATION
  Report Type: Report from Study
  Country: None (occurrence: CO)
  Receive Date: 20210719
  Receipt Date: 20210916
  Transmission Date: 20211014
  Serious: Yes (Hospitalization)
  Sender: FDA-Public Use
  Company Number: CO-ABBVIE-21K-036-3996126-00

PATIENT
  Age: 37 Year
  Sex: Male
  Weight: 60 kg

DRUGS (2)
  1. ZEMPLAR [Suspect]
     Active Substance: PARICALCITOL
     Indication: HYPERPARATHYROIDISM SECONDARY
     Route: 042
     Dates: start: 20200907, end: 20210710
  2. ZEMPLAR [Suspect]
     Active Substance: PARICALCITOL
     Indication: CHRONIC KIDNEY DISEASE
     Route: 042
     Dates: start: 2021

REACTIONS (9)
  - Gastritis [Not Recovered/Not Resolved]
  - Pneumothorax [Unknown]
  - Blood pressure increased [Recovering/Resolving]
  - Hepatitis [Recovering/Resolving]
  - Peripheral swelling [Recovering/Resolving]
  - Abdominal distension [Unknown]
  - Pulmonary congestion [Recovering/Resolving]
  - Food intolerance [Recovering/Resolving]
  - Intra-abdominal fluid collection [Recovering/Resolving]

NARRATIVE: CASE EVENT DATE: 2021
